FAERS Safety Report 6204384-3 (Version None)
Quarter: 2009Q2

REPORT INFORMATION
  Report Type: 
  Country: None (occurrence: None)
  Receive Date: 20090522
  Receipt Date: 20090513
  Transmission Date: 20091009
  Serious: Yes (Hospitalization)
  Sender: FDA-Public Use
  Company Number: 2009SP010241

PATIENT
  Age: 63 Year
  Sex: Female
  Weight: 98.3852 kg

DRUGS (11)
  1. RIBAVIRIN [Suspect]
     Indication: HEPATITIS C
     Dosage: 1200 MG;QD;PO; 600 MG;QD;PO; 1400MG;QD;PO
     Route: 048
     Dates: start: 20060907, end: 20061012
  2. RIBAVIRIN [Suspect]
     Indication: HEPATITIS C
     Dosage: 1200 MG;QD;PO; 600 MG;QD;PO; 1400MG;QD;PO
     Route: 048
     Dates: start: 20061013, end: 20061117
  3. RIBAVIRIN [Suspect]
     Indication: HEPATITIS C
     Dosage: 1200 MG;QD;PO; 600 MG;QD;PO; 1400MG;QD;PO
     Route: 048
     Dates: start: 20090313, end: 20090421
  4. PEGASYS [Suspect]
     Indication: HEPATITIS C
     Dosage: 180 MCG;QW; SC
     Route: 058
     Dates: start: 20060907, end: 20061117
  5. PEGASYS [Suspect]
     Indication: HEPATITIS C
     Dosage: 180 MCG;QW; SC
     Route: 058
     Dates: start: 20090313, end: 20090421
  6. ASPIRIN [Concomitant]
  7. PLAVIX [Concomitant]
  8. LASIX [Concomitant]
  9. PRAVASTATIN [Concomitant]
  10. K DUR [Concomitant]
  11. DARVOCET [Concomitant]

REACTIONS (12)
  - ANAEMIA [None]
  - CONTUSION [None]
  - DEPRESSION [None]
  - DIARRHOEA [None]
  - DYSPNOEA [None]
  - EYE DISORDER [None]
  - FEELING COLD [None]
  - FEELING HOT [None]
  - HEADACHE [None]
  - NAUSEA [None]
  - PRESYNCOPE [None]
  - VERTIGO [None]
